FAERS Safety Report 24809989 (Version 1)
Quarter: 2025Q1

REPORT INFORMATION
  Report Type: Spontaneous
  Country: US (occurrence: None)
  Receive Date: 20250103
  Receipt Date: 20250103
  Transmission Date: 20250409
  Serious: Yes (unspecified)
  Sender: FDA-CTU
  Company Number: None

PATIENT
  Age: 20 Year
  Sex: Male
  Weight: 99.8 kg

DRUGS (1)
  1. AMBISOME [Suspect]
     Active Substance: AMPHOTERICIN B
     Route: 042
     Dates: start: 20241210, end: 20241210

REACTIONS (2)
  - Anaphylactic reaction [None]
  - Dyspnoea [None]

NARRATIVE: CASE EVENT DATE: 20241210
